FAERS Safety Report 6332785-1 (Version None)
Quarter: 2009Q3

REPORT INFORMATION
  Report Type: 
  Country: None (occurrence: None)
  Receive Date: 20090828
  Receipt Date: 20090820
  Transmission Date: 20100115
  Serious: Yes (Other)
  Sender: FDA-Public Use
  Company Number: B0589552A

PATIENT
  Sex: Male

DRUGS (1)
  1. TIMENTIN [Suspect]
     Dosage: 3.2G THREE TIMES PER DAY
     Route: 042
     Dates: start: 20090816

REACTIONS (5)
  - CONDITION AGGRAVATED [None]
  - LYMPHOCYTE COUNT DECREASED [None]
  - MONOCYTE COUNT DECREASED [None]
  - NEUTROPHIL COUNT DECREASED [None]
  - RENAL FAILURE ACUTE [None]
